FAERS Safety Report 8318641-8 (Version None)
Quarter: 2012Q1

REPORT INFORMATION
  Report Type: 
  Country: None (occurrence: None)
  Receive Date: 20120315
  Receipt Date: 20110204
  Transmission Date: 20120608
  Serious: Yes (Hospitalization, Other)
  Sender: FDA-Public Use
  Company Number: PHHY2011US01733

PATIENT
  Age: 30 Year
  Sex: Female

DRUGS (5)
  1. NEURONTIN [Concomitant]
  2. GILENYA [Suspect]
     Indication: MULTIPLE SCLEROSIS
     Dosage: 0.5 MG, QD, ORAL
     Route: 048
     Dates: start: 20101228, end: 20110110
  3. CYMBALTA [Concomitant]
  4. MIRENA [Concomitant]
  5. OXYBUTYNIN [Concomitant]

REACTIONS (8)
  - RESPIRATORY TRACT CONGESTION [None]
  - MYCOPLASMA TEST POSITIVE [None]
  - CHEST PAIN [None]
  - ASTHENIA [None]
  - PNEUMONIA [None]
  - PAIN [None]
  - BODY TEMPERATURE INCREASED [None]
  - COUGH [None]
